FAERS Safety Report 21376535 (Version 1)
Quarter: 2022Q3

REPORT INFORMATION
  Report Type: Spontaneous
  Country: US (occurrence: US)
  Receive Date: 20220926
  Receipt Date: 20220926
  Transmission Date: 20221026
  Serious: No
  Sender: FDA-Public Use
  Company Number: US-BEH-2022149825

PATIENT
  Sex: Male

DRUGS (2)
  1. PRIVIGEN [Suspect]
     Active Substance: HUMAN IMMUNOGLOBULIN G
     Indication: Polymyositis
     Dosage: 10 GRAM, FOR 2 DAYS EVERY 4 WEEKS
     Route: 042
     Dates: start: 20190903, end: 20220720
  2. PRIVIGEN [Suspect]
     Active Substance: HUMAN IMMUNOGLOBULIN G
     Dosage: 80 GRAM, FOR 2 DAYS EVERY 4 WEEKS
     Route: 042
     Dates: start: 20190903, end: 20220720

REACTIONS (3)
  - Weight decreased [Unknown]
  - No adverse event [Unknown]
  - Off label use [Unknown]
